FAERS Safety Report 25450692 (Version 1)
Quarter: 2025Q2

REPORT INFORMATION
  Report Type: Spontaneous
  Country: DE (occurrence: DE)
  Receive Date: 20250618
  Receipt Date: 20250618
  Transmission Date: 20250717
  Serious: Yes (Hospitalization)
  Sender: MYLAN
  Company Number: DE-MYLANLABS-2025M1050692

PATIENT
  Age: 71 Year
  Sex: Male

DRUGS (6)
  1. TACROLIMUS [Suspect]
     Active Substance: TACROLIMUS
     Indication: Prophylaxis against transplant rejection
  2. HEPARIN [Suspect]
     Active Substance: HEPARIN SODIUM
     Indication: Anticoagulant therapy
  3. HEPARIN [Suspect]
     Active Substance: HEPARIN SODIUM
     Indication: Atrial fibrillation
  4. MYCOPHENOLATE MOFETIL [Concomitant]
     Active Substance: MYCOPHENOLATE MOFETIL
     Indication: Prophylaxis against transplant rejection
  5. PREDNISOLONE [Concomitant]
     Active Substance: PREDNISOLONE
     Indication: Encephalitis autoimmune
  6. LACOSAMIDE [Concomitant]
     Active Substance: LACOSAMIDE
     Indication: Encephalitis autoimmune
     Dosage: 100 MILLIGRAM, BID

REACTIONS (3)
  - Encephalitis autoimmune [Recovered/Resolved]
  - Antibody test negative [Recovered/Resolved]
  - Drug ineffective [Unknown]
